FAERS Safety Report 19051104 (Version 1)
Quarter: 2021Q1

REPORT INFORMATION
  Report Type: Spontaneous
  Country: EG (occurrence: EG)
  Receive Date: 20210323
  Receipt Date: 20210323
  Transmission Date: 20210420
  Serious: Yes (Death, Hospitalization, Other)
  Sender: FDA-Public Use
  Company Number: EG-ABBVIE-21K-048-3826351-00

PATIENT
  Sex: Male
  Weight: .92 kg

DRUGS (4)
  1. BERACTANT [Suspect]
     Active Substance: BERACTANT
     Indication: ACUTE RESPIRATORY DISTRESS SYNDROME
     Dosage: 25MG/ML VIAL, 4ML/KG
     Route: 039
     Dates: start: 20201109, end: 20201110
  2. GENTAMICIN. [Concomitant]
     Active Substance: GENTAMICIN
     Indication: SEPSIS
     Dosage: 4 MG/ML AMPOULE BY A DOSE 4.5 MG/KG/36 HRS
     Route: 042
     Dates: start: 20201109, end: 20201110
  3. CAFFEINE CITRATE. [Concomitant]
     Active Substance: CAFFEINE CITRATE
     Indication: PREMATURE BABY
     Dosage: 20 MG/ML AMPOULE BY A DOSE 5MG/KG/24 HRS
     Route: 042
     Dates: start: 20201109, end: 20201110
  4. AMPICILLIN [Concomitant]
     Active Substance: AMPICILLIN
     Indication: SEPSIS
     Dosage: RECONSTITUTED TO A FINAL CONCENTRATION 100 MG/ML BY A DOSE 50 MG/KG/12 HRS
     Route: 042
     Dates: start: 20201109, end: 20201110

REACTIONS (6)
  - Metabolic acidosis [Fatal]
  - General physical health deterioration [Fatal]
  - Pulmonary haemorrhage [Fatal]
  - Gastrointestinal haemorrhage [Fatal]
  - Hyperglycaemia [Fatal]
  - Hypotension [Fatal]

NARRATIVE: CASE EVENT DATE: 20201110
